FAERS Safety Report 9040670 (Version 1)
Quarter: 2013Q1

REPORT INFORMATION
  Report Type: Report from Study
  Country: US (occurrence: US)
  Receive Date: 20130129
  Receipt Date: 20130129
  Transmission Date: 20140127
  Serious: No
  Sender: FDA-Public Use
  Company Number: US-ABBOTT-12P-163-0893640-00

PATIENT
  Age: 49 Year
  Sex: Female

DRUGS (15)
  1. HUMIRA 40 MG/0.8 ML PEN [Suspect]
     Indication: PSORIASIS
     Dates: start: 20111013
  2. ALLERGY DROPS [Concomitant]
     Indication: PRODUCT USED FOR UNKNOWN INDICATION
     Dosage: DAILY
  3. FISH OIL [Concomitant]
     Indication: PRODUCT USED FOR UNKNOWN INDICATION
  4. MEDROXYPROGESTERONE [Concomitant]
     Indication: HORMONE REPLACEMENT THERAPY
  5. XANAX [Concomitant]
     Indication: ANXIETY
  6. OXYCONTIN [Concomitant]
     Indication: PAIN
     Dosage: EVERY EIGHT HOURS AS NEEDED
  7. ZOLOFT [Concomitant]
     Indication: DEPRESSION
  8. FLEXERIL [Concomitant]
     Indication: MYALGIA
  9. NEXIUM [Concomitant]
     Indication: GASTROOESOPHAGEAL REFLUX DISEASE
  10. PROVIGIL [Concomitant]
     Indication: SOMNOLENCE
  11. TOPIRAMATE [Concomitant]
     Indication: NEURALGIA
  12. FLONASE [Concomitant]
     Indication: HYPERSENSITIVITY
     Dosage: TWO SPRAYS PER DAY
  13. FLONASE [Concomitant]
     Indication: ASTHMA
  14. PROTOPIC [Concomitant]
     Indication: PSORIASIS
     Dosage: TWICE DAILY, ON FEET AND HANDS
  15. HYDROXYZINE HCL [Concomitant]
     Indication: PRURITUS

REACTIONS (3)
  - Rash generalised [Not Recovered/Not Resolved]
  - Urticaria [Not Recovered/Not Resolved]
  - Abdominal pain upper [Unknown]
